FAERS Safety Report 7126225-2 (Version None)
Quarter: 2010Q4

REPORT INFORMATION
  Report Type: 
  Country: None (occurrence: None)
  Receive Date: 20101129
  Receipt Date: 20101116
  Transmission Date: 20110411
  Serious: Yes (Death, Hospitalization)
  Sender: FDA-Public Use
  Company Number: PHHY2010JP77872

PATIENT
  Sex: Male

DRUGS (9)
  1. ICL670A ICL+DISTAB [Suspect]
     Indication: MYELODYSPLASTIC SYNDROME
     Dosage: 500 MG, DAILY
     Route: 048
     Dates: start: 20100521, end: 20100608
  2. DESFERAL [Concomitant]
     Indication: IRON OVERLOAD
     Dosage: 500 MG, UNK
     Route: 042
     Dates: start: 20100524, end: 20100608
  3. GASMOTIN [Concomitant]
     Dosage: 10 MG, UNK
     Route: 048
     Dates: start: 20100524, end: 20100101
  4. BAKTAR [Concomitant]
     Indication: PROPHYLAXIS
     Dosage: 1 DF, UNK
     Route: 048
     Dates: start: 20100524, end: 20100101
  5. DIFLUCAN [Concomitant]
     Indication: PROPHYLAXIS
     Dosage: 100 MG, UNK
     Route: 048
     Dates: start: 20100524, end: 20100101
  6. BETAMETHASONE [Concomitant]
     Indication: MYELODYSPLASTIC SYNDROME
     Dosage: 0.25 MG, UNK
     Route: 048
     Dates: start: 20100524, end: 20100101
  7. MYSLEE [Concomitant]
     Dosage: 2.5 MG, UNK
     Route: 048
     Dates: start: 20100524, end: 20100101
  8. CRAVIT [Concomitant]
     Indication: PROPHYLAXIS
     Dosage: 250 MG, UNK
     Route: 048
     Dates: start: 20100524, end: 20100101
  9. RED BLOOD CELLS, CONCENTRATED [Concomitant]
     Dosage: 2 UNITS 1-2 TIMES A WEEK
     Dates: end: 20100604

REACTIONS (2)
  - BRONCHOPULMONARY ASPERGILLOSIS [None]
  - SUBILEUS [None]
